FAERS Safety Report 11057872 (Version 2)
Quarter: 2015Q2

REPORT INFORMATION
  Report Type: Spontaneous
  Country: TR (occurrence: TR)
  Receive Date: 20150423
  Receipt Date: 20150504
  Transmission Date: 20150821
  Serious: Yes (Other)
  Sender: FDA-Public Use
  Company Number: TR-SUN PHARMACEUTICAL INDUSTRIES LTD-2015R1-95787

PATIENT
  Age: 9 Year
  Sex: Male

DRUGS (1)
  1. METHYLPHENIDATE [Suspect]
     Active Substance: METHYLPHENIDATE
     Indication: ATTENTION DEFICIT/HYPERACTIVITY DISORDER
     Dosage: GRADUALLY TITRATED TO 1 MG/KG
     Route: 065

REACTIONS (3)
  - Phobia [Unknown]
  - Hallucination, visual [Unknown]
  - Drug ineffective [Unknown]
